FAERS Safety Report 6328658-0 (Version None)
Quarter: 2009Q3

REPORT INFORMATION
  Report Type: 
  Country: None (occurrence: None)
  Receive Date: 20090826
  Receipt Date: 20070806
  Transmission Date: 20100115
  Serious: Yes (Other)
  Sender: FDA-Public Use
  Company Number: US-ASTRAZENECA-2007UW02092

PATIENT
  Age: 42 Year
  Sex: Female

DRUGS (24)
  1. SEROQUEL [Suspect]
     Indication: BIPOLAR DISORDER
     Dosage: UP TO 300 MG
     Route: 048
     Dates: start: 20030401, end: 20061101
  2. SEROQUEL [Suspect]
     Indication: ANXIETY
     Dosage: UP TO 300 MG
     Route: 048
     Dates: start: 20030401, end: 20061101
  3. SEROQUEL [Suspect]
     Indication: INSOMNIA
     Dosage: UP TO 300 MG
     Route: 048
     Dates: start: 20030401, end: 20061101
  4. SEROQUEL [Suspect]
     Dosage: 25-200 MG
     Route: 048
     Dates: start: 20030606
  5. SEROQUEL [Suspect]
     Dosage: 25-200 MG
     Route: 048
     Dates: start: 20030606
  6. SEROQUEL [Suspect]
     Dosage: 25-200 MG
     Route: 048
     Dates: start: 20030606
  7. RISPERDAL [Concomitant]
     Dosage: 0.25 MG TO 1.0 MG
     Dates: start: 20030401, end: 20041001
  8. GABITRIL [Concomitant]
     Dates: start: 20030606
  9. LUVOX [Concomitant]
     Dates: start: 20030606
  10. CYMBALTA [Concomitant]
     Dates: start: 20070406
  11. VISTARIL [Concomitant]
     Dates: start: 20070406
  12. KLONOPIN [Concomitant]
     Dosage: 1-3 MG
     Dates: start: 20020627
  13. PROZAC [Concomitant]
     Dosage: 40-80 MG
     Dates: start: 20010419
  14. GEODON [Concomitant]
     Dosage: 20 MG IN MORNING AND 40 MG AT 6 PM
     Dates: start: 20070817
  15. METFORMIN HYDROCHLORIDE [Concomitant]
     Dosage: 1000-1500 MG
     Dates: start: 20040218
  16. LASIX [Concomitant]
     Dates: start: 20020422
  17. REMERON [Concomitant]
     Indication: SLEEP DISORDER
     Dates: start: 20010419
  18. TRICOR [Concomitant]
     Dates: start: 20020911
  19. PRANDIN [Concomitant]
     Dates: start: 20071210
  20. LISINOPRIL [Concomitant]
     Dates: start: 20071210
  21. ZOCOR [Concomitant]
     Dosage: 40 DAILY
     Dates: start: 20071210
  22. ROZEREM [Concomitant]
     Dosage: 8 MG AT NIGHT PRN
     Dates: start: 20071210
  23. PROMETHAZINE [Concomitant]
     Dosage: 25 MG AS NEEDED
     Dates: start: 20071210
  24. MECLIZINE [Concomitant]
     Dosage: 25 MG PRN
     Dates: start: 20071210

REACTIONS (8)
  - ASTHMA [None]
  - CARPAL TUNNEL SYNDROME [None]
  - CERVICAL MYELOPATHY [None]
  - DIABETIC NEUROPATHY [None]
  - OEDEMA [None]
  - RESTLESS LEGS SYNDROME [None]
  - TYPE 1 DIABETES MELLITUS [None]
  - TYPE 2 DIABETES MELLITUS [None]
